FAERS Safety Report 8863050 (Version 3)
Quarter: 2013Q1

REPORT INFORMATION
  Report Type: Report from Study
  Country: US (occurrence: US)
  Receive Date: 20121026
  Receipt Date: 20130107
  Transmission Date: 20140127
  Serious: Yes (Other)
  Sender: FDA-Public Use
  Company Number: US-ABBOTT-12P-163-0997775-00

PATIENT
  Sex: Male
  Weight: 69.46 kg

DRUGS (6)
  1. HUMIRA [Suspect]
     Indication: PSORIASIS
     Route: 058
     Dates: start: 20110427, end: 201212
  2. HUMIRA [Suspect]
     Indication: PSORIASIS
  3. CENTRUM SILVER [Concomitant]
     Indication: VITAMIN SUPPLEMENTATION
  4. IBUPROFEN [Concomitant]
     Indication: PRODUCT USED FOR UNKNOWN INDICATION
     Dosage: TWICE A DAY AS NEEDED
  5. DERMA-SMOOTHE/FS [Concomitant]
     Indication: PSORIASIS
  6. TACLONEX [Concomitant]
     Indication: PSORIASIS

REACTIONS (13)
  - Weight decreased [Recovered/Resolved]
  - Pyrexia [Recovered/Resolved]
  - Chills [Recovered/Resolved]
  - Colon cancer [Recovered/Resolved]
  - Psoriasis [Not Recovered/Not Resolved]
  - Haematochezia [Unknown]
  - Influenza like illness [Unknown]
  - Asthenia [Unknown]
  - Arthralgia [Unknown]
  - Oropharyngeal pain [Unknown]
  - Myalgia [Unknown]
  - Joint stiffness [Unknown]
  - Night sweats [Unknown]
